FAERS Safety Report 4926675-6 (Version None)
Quarter: 2006Q1

REPORT INFORMATION
  Report Type: 
  Country: None (occurrence: None)
  Receive Date: 20060228
  Receipt Date: 20060222
  Transmission Date: 20060701
  Serious: Yes (Hospitalization, Other)
  Sender: FDA-Public Use
  Company Number: US-JNJFOC-20040302498

PATIENT
  Sex: Male
  Weight: 74.39 kg

DRUGS (5)
  1. REMICADE [Suspect]
     Route: 042
     Dates: start: 20031014, end: 20040115
  2. REMICADE [Suspect]
     Indication: ANKYLOSING SPONDYLITIS
     Route: 042
     Dates: start: 20031014, end: 20040115
  3. REMICADE [Suspect]
     Indication: RHEUMATOID ARTHRITIS
     Route: 042
     Dates: start: 20031014, end: 20040115
  4. HYDROCODONE BITARTRATE [Concomitant]
     Dosage: 6-8 TABS/DAY
     Dates: start: 19980101
  5. METHOTREXATE [Concomitant]

REACTIONS (3)
  - BRONCHITIS [None]
  - PERITONEAL TUBERCULOSIS [None]
  - PULMONARY TUBERCULOSIS [None]
